FAERS Safety Report 18297067 (Version 1)
Quarter: 2020Q3

REPORT INFORMATION
  Report Type: Spontaneous
  Country: JP (occurrence: JP)
  Receive Date: 20200922
  Receipt Date: 20200922
  Transmission Date: 20201103
  Serious: No
  Sender: FDA-Public Use
  Company Number: JP-TOLMAR, INC.-20JP022840

PATIENT
  Age: 24 Year
  Sex: Female

DRUGS (1)
  1. ELIGARD [Suspect]
     Active Substance: LEUPROLIDE ACETATE
     Indication: UTERINE POLYP
     Dosage: UNK
     Route: 065

REACTIONS (1)
  - Off label use [Unknown]
